FAERS Safety Report 4687546-6 (Version None)
Quarter: 2005Q2

REPORT INFORMATION
  Report Type: 
  Country: None (occurrence: None)
  Receive Date: 20050610
  Receipt Date: 20050511
  Transmission Date: 20051028
  Serious: Yes (Hospitalization, Other)
  Sender: FDA-Public Use
  Company Number: CA-AMGEN-US132632

PATIENT
  Sex: Male
  Weight: 64 kg

DRUGS (11)
  1. ARANESP [Suspect]
     Indication: RENAL FAILURE CHRONIC
     Route: 058
     Dates: start: 20040414, end: 20050401
  2. FERROUS SULFATE [Concomitant]
     Dates: start: 20040726, end: 20050410
  3. CALCIUM GLUCONATE [Concomitant]
  4. ONE-ALPHA [Concomitant]
     Dates: start: 20040512
  5. LIPITOR [Concomitant]
  6. LOPRESSOR [Concomitant]
  7. LASIX [Concomitant]
     Dates: start: 20040512
  8. COUMADIN [Concomitant]
  9. PREDNISONE TAB [Concomitant]
  10. ASPIRIN [Concomitant]
  11. SYNTHROID [Concomitant]
     Dates: start: 20040512

REACTIONS (5)
  - ANAEMIA [None]
  - APLASIA PURE RED CELL [None]
  - BONE MARROW DEPRESSION [None]
  - PNEUMONIA [None]
  - PULMONARY SEPSIS [None]
